FAERS Safety Report 17333366 (Version 1)
Quarter: 2020Q1

REPORT INFORMATION
  Report Type: Spontaneous
  Country: US (occurrence: US)
  Receive Date: 20200112
  Receipt Date: 20200112
  Transmission Date: 20200409
  Serious: Yes (Hospitalization)
  Sender: FDA-Public Use
  Company Number: None

PATIENT
  Age: 57 Year
  Sex: Female
  Weight: 76 kg

DRUGS (4)
  1. CYTARABINE. [Suspect]
     Active Substance: CYTARABINE
     Dates: end: 20191215
  2. PEG-L-ASPARAGINASE [Suspect]
     Active Substance: PEGASPARGASE
     Dates: end: 20191216
  3. ETOPOSIDE. [Suspect]
     Active Substance: ETOPOSIDE
     Dates: end: 20191215
  4. METHOTREXATE. [Suspect]
     Active Substance: METHOTREXATE
     Dates: end: 20191212

REACTIONS (5)
  - Neutropenia [None]
  - Pyrexia [None]
  - Abdominal pain [None]
  - Colitis [None]
  - Liver disorder [None]

NARRATIVE: CASE EVENT DATE: 20191226
